FAERS Safety Report 4477142-8 (Version None)
Quarter: 2004Q4

REPORT INFORMATION
  Report Type: 
  Country: None (occurrence: None)
  Receive Date: 20041012
  Receipt Date: 20040928
  Transmission Date: 20050328
  Serious: Yes (Death)
  Sender: FDA-Public Use
  Company Number: S04-UKI-06403-01

PATIENT
  Age: 64 Year
  Sex: Male

DRUGS (12)
  1. CIPRALEX (ESCITALOPRAM) [Suspect]
     Indication: ANXIETY
     Dosage: 10 MG QD; PO
     Route: 048
     Dates: start: 20040806, end: 20040816
  2. CIPRALEX (ESCITALOPRAM) [Suspect]
     Indication: DEPRESSION
     Dosage: 10 MG QD; PO
     Route: 048
     Dates: start: 20040806, end: 20040816
  3. CIPRALEX (ESCITALOPRAM) [Suspect]
     Indication: ANXIETY
     Dosage: 20 MG QD; PO
     Route: 048
     Dates: start: 20040816
  4. CIPRALEX (ESCITALOPRAM) [Suspect]
     Indication: DEPRESSION
     Dosage: 20 MG QD; PO
     Route: 048
     Dates: start: 20040816
  5. DIAZEPAM [Suspect]
     Indication: ANXIETY
     Dates: end: 20040816
  6. DIAZEPAM [Suspect]
     Indication: DEPRESSION
     Dates: end: 20040816
  7. DIAZEPAM [Suspect]
     Indication: ANXIETY
     Dates: start: 20040816, end: 20040816
  8. DIAZEPAM [Suspect]
     Indication: DEPRESSION
     Dates: start: 20040816, end: 20040816
  9. ATENOLOL [Suspect]
     Dosage: 25 MG QD
     Dates: end: 20040816
  10. ATENOLOL [Suspect]
     Dates: start: 20040101
  11. ATENOLOL [Suspect]
     Dates: start: 20040816, end: 20040816
  12. SIMVASTATIN [Concomitant]

REACTIONS (4)
  - COMPLETED SUICIDE [None]
  - DRUG WITHDRAWAL SYNDROME [None]
  - INTENTIONAL OVERDOSE [None]
  - SUICIDE ATTEMPT [None]
